FAERS Safety Report 5761608-4 (Version None)
Quarter: 2008Q2

REPORT INFORMATION
  Report Type: 
  Country: None (occurrence: None)
  Receive Date: 20080606
  Receipt Date: 20080529
  Transmission Date: 20081010
  Serious: Yes (Hospitalization)
  Sender: FDA-Public Use
  Company Number: US-AMGEN-QUU276590

PATIENT
  Sex: Female

DRUGS (5)
  1. ENBREL [Suspect]
     Indication: PSORIASIS
     Route: 058
     Dates: start: 20071227, end: 20080422
  2. SYNTHROID [Concomitant]
  3. TRIAMTERENE AND HYDROCHLOROTHIAZIDE [Concomitant]
  4. GLIMEPIRIDE [Concomitant]
  5. ACIPHEX [Concomitant]

REACTIONS (5)
  - ANAEMIA [None]
  - GASTRITIS [None]
  - HIATUS HERNIA [None]
  - LEUKOPENIA [None]
  - METASTASES TO BONE [None]
